FAERS Safety Report 10631433 (Version 1)
Quarter: 2014Q4

REPORT INFORMATION
  Report Type: Spontaneous
  Country: US (occurrence: US)
  Receive Date: 20141205
  Receipt Date: 20141205
  Transmission Date: 20150529
  Serious: No
  Sender: FDA-Public Use
  Company Number: US-BRISTOL-MYERS SQUIBB COMPANY-21044433

PATIENT
  Age: 61 Year
  Sex: Female

DRUGS (6)
  1. LUMIGAN [Concomitant]
     Active Substance: BIMATOPROST
     Dosage: 1DF:0.01 EYE DROPS
  2. FOLIC ACID. [Concomitant]
     Active Substance: FOLIC ACID
  3. LIPITOR [Concomitant]
     Active Substance: ATORVASTATIN CALCIUM
  4. METHOTREXATE [Concomitant]
     Active Substance: METHOTREXATE
  5. ASPIRIN. [Concomitant]
     Active Substance: ASPIRIN
  6. ABATACEPT SUBQ INJECTION 125MG/ML [Suspect]
     Active Substance: ABATACEPT
     Indication: RHEUMATOID ARTHRITIS
     Dosage: UNTIL 09JUN2014
     Route: 058
     Dates: start: 20140414

REACTIONS (1)
  - Rheumatoid arthritis [Unknown]
